FAERS Safety Report 4365258-6 (Version None)
Quarter: 2004Q2

REPORT INFORMATION
  Report Type: 
  Country: None (occurrence: None)
  Receive Date: 20040525
  Receipt Date: 20040206
  Transmission Date: 20050107
  Serious: No
  Sender: FDA-Public Use
  Company Number: PHEH2004US00472

PATIENT
  Age: 73 Year
  Sex: Female
  Weight: 63.7 kg

DRUGS (15)
  1. ZELNORM [Suspect]
     Indication: IRRITABLE BOWEL SYNDROME
     Dosage: 6 MG, BID, ORAL
     Route: 048
     Dates: start: 20031202, end: 20040105
  2. TRICOR [Concomitant]
  3. SYNTHROID [Concomitant]
  4. PLAVIX [Concomitant]
  5. LISINOPRIL [Concomitant]
  6. PROTONIX [Concomitant]
  7. TOPROL-XL [Concomitant]
  8. ASPIRIN [Concomitant]
  9. OGEN [Concomitant]
  10. VITAMIN B-12 [Concomitant]
  11. VITAMIN B6 [Concomitant]
  12. VITAMIN E [Concomitant]
  13. VITAMIN C [Concomitant]
  14. FOLIC ACID [Concomitant]
  15. CALCIUM [Concomitant]

REACTIONS (1)
  - APHTHOUS STOMATITIS [None]
